FAERS Safety Report 7370739-7 (Version None)
Quarter: 2011Q1

REPORT INFORMATION
  Report Type: 
  Country: None (occurrence: None)
  Receive Date: 20110323
  Receipt Date: 20110317
  Transmission Date: 20110831
  Serious: Yes (Hospitalization)
  Sender: FDA-Public Use
  Company Number: US-BRISTOL-MYERS SQUIBB COMPANY-15605116

PATIENT
  Age: 15 Year
  Sex: Male

DRUGS (1)
  1. CEFEPIME [Suspect]

REACTIONS (1)
  - LUPUS-LIKE SYNDROME [None]
